FAERS Safety Report 5536479-1 (Version None)
Quarter: 2007Q4

REPORT INFORMATION
  Report Type: 
  Country: None (occurrence: None)
  Receive Date: 20071206
  Receipt Date: 20071030
  Transmission Date: 20080405
  Serious: Yes (Other)
  Sender: FDA-Public Use
  Company Number: US-AMGEN-STX248912

PATIENT
  Sex: Female
  Weight: 68.1 kg

DRUGS (3)
  1. ENBREL [Suspect]
     Indication: RHEUMATOID ARTHRITIS
     Route: 065
     Dates: start: 19990701
  2. METHOTREXATE [Concomitant]
     Dates: start: 19960101
  3. ARAVA [Concomitant]
     Dates: start: 20020101

REACTIONS (2)
  - BREAST CANCER [None]
  - INJECTION SITE EXTRAVASATION [None]
